FAERS Safety Report 9909982 (Version 1)
Quarter: 2014Q1

REPORT INFORMATION
  Report Type: Spontaneous
  Country: US (occurrence: None)
  Receive Date: 20140212
  Receipt Date: 20140212
  Transmission Date: 20141002
  Serious: Yes (Death)
  Sender: FDA-Public Use
  Company Number: 2014020094

PATIENT
  Age: 46 Year
  Sex: Male

DRUGS (11)
  1. CARISOPRODOL [Suspect]
  2. AMLODIPINE [Suspect]
  3. METOPROLOL [Suspect]
  4. METFORMIN [Suspect]
  5. ALPRAZOLAM [Suspect]
  6. HYDROCODONE (HYDROCODONE) [Suspect]
  7. GLYBURIDE [Suspect]
  8. FAMOTIDINE [Suspect]
  9. GEMFIBROZIL (GEMFIBROZIL) [Suspect]
  10. PRAVASTATIN (PRAVASTATIN) [Suspect]
  11. ALLOPURINOL [Suspect]

REACTIONS (3)
  - Exposure via ingestion [None]
  - Completed suicide [None]
  - Completed suicide [None]
